FAERS Safety Report 18522621 (Version 1)
Quarter: 2020Q4

REPORT INFORMATION
  Report Type: Spontaneous
  Country: RU (occurrence: RU)
  Receive Date: 20201119
  Receipt Date: 20201119
  Transmission Date: 20210114
  Serious: Yes (Life-Threatening)
  Sender: FDA-Public Use
  Company Number: NVSC2020RU307555

PATIENT
  Age: 69 Year
  Sex: Male
  Weight: 80 kg

DRUGS (2)
  1. AMOKSIKLAV QUICKTAB [Suspect]
     Active Substance: AMOXICILLIN\CLAVULANATE POTASSIUM
     Indication: PNEUMONIA VIRAL
     Dosage: 1000 MG, QD
     Route: 065
     Dates: start: 20201109, end: 20201113
  2. FLUIMUCIL [Concomitant]
     Active Substance: ACETYLCYSTEINE
     Indication: PNEUMONIA VIRAL
     Dosage: UNK
     Route: 065
     Dates: start: 20201109, end: 20201113

REACTIONS (5)
  - Anaphylactic shock [Recovering/Resolving]
  - Loss of consciousness [Recovering/Resolving]
  - Blood pressure abnormal [Recovering/Resolving]
  - Rash [Recovering/Resolving]
  - Asthenia [Recovering/Resolving]

NARRATIVE: CASE EVENT DATE: 20201113
